FAERS Safety Report 9275287 (Version 1)
Quarter: 2013Q2

REPORT INFORMATION
  Report Type: Spontaneous
  Country: US (occurrence: US)
  Receive Date: 20130507
  Receipt Date: 20130507
  Transmission Date: 20140414
  Serious: Yes (Hospitalization)
  Sender: FDA-Public Use
  Company Number: US-BRISTOL-MYERS SQUIBB COMPANY-18837567

PATIENT
  Age: 36 Year
  Sex: Male
  Weight: 84.8 kg

DRUGS (4)
  1. REYATAZ [Suspect]
  2. TRUVADA [Concomitant]
  3. NORVIR [Concomitant]
  4. ARANESP [Concomitant]

REACTIONS (2)
  - Anaemia [Unknown]
  - Road traffic accident [Unknown]
